FAERS Safety Report 16812134 (Version 1)
Quarter: 2019Q3

REPORT INFORMATION
  Report Type: Spontaneous
  Country: US (occurrence: US)
  Receive Date: 20190916
  Receipt Date: 20190916
  Transmission Date: 20191005
  Serious: No
  Sender: FDA-Public Use
  Company Number: US-VIVUS, INC.-2019V1001006

PATIENT
  Age: 61 Year
  Sex: Female
  Weight: 118.04 kg

DRUGS (5)
  1. PROTONIX [Concomitant]
     Active Substance: PANTOPRAZOLE SODIUM
     Indication: DYSPEPSIA
     Route: 048
  2. QSYMIA [Suspect]
     Active Substance: PHENTERMINE HYDROCHLORIDE\TOPIRAMATE
     Indication: WEIGHT DECREASED
     Route: 048
     Dates: start: 201701
  3. SYNTHROID [Concomitant]
     Active Substance: LEVOTHYROXINE SODIUM
     Indication: SUPPLEMENTATION THERAPY
     Route: 048
  4. HUMAN GROWTH HORMONE [Concomitant]
     Active Substance: SOMATROPIN
     Indication: SUPPLEMENTATION THERAPY
     Dates: start: 1997
  5. QSYMIA [Suspect]
     Active Substance: PHENTERMINE HYDROCHLORIDE\TOPIRAMATE
     Indication: WEIGHT DECREASED
     Route: 048

REACTIONS (3)
  - Anxiety [Recovered/Resolved]
  - Therapy cessation [Unknown]
  - Nervousness [Recovered/Resolved]

NARRATIVE: CASE EVENT DATE: 201701
